FAERS Safety Report 16696936 (Version 1)
Quarter: 2019Q3

REPORT INFORMATION
  Report Type: Spontaneous
  Country: US (occurrence: US)
  Receive Date: 20190813
  Receipt Date: 20190813
  Transmission Date: 20191004
  Serious: No
  Sender: FDA-Public Use
  Company Number: US-PFIZER INC-2019341909

PATIENT
  Age: 89 Year
  Sex: Female

DRUGS (1)
  1. OXAPROZIN. [Suspect]
     Active Substance: OXAPROZIN
     Dosage: UNK

REACTIONS (3)
  - Drug hypersensitivity [Unknown]
  - Rash [Unknown]
  - Swelling [Unknown]
